FAERS Safety Report 16538361 (Version 3)
Quarter: 2019Q3

REPORT INFORMATION
  Report Type: Spontaneous
  Country: US (occurrence: US)
  Receive Date: 20190708
  Receipt Date: 20190925
  Transmission Date: 20191004
  Serious: No
  Sender: FDA-Public Use
  Company Number: US-ASTRAZENECA-2019SE87466

PATIENT
  Age: 26366 Day
  Sex: Female
  Weight: 57.6 kg

DRUGS (1)
  1. SYMBICORT [Suspect]
     Active Substance: BUDESONIDE\FORMOTEROL FUMARATE DIHYDRATE
     Dosage: 160/4.5MCG, 2 PUFFS, TWICE A DAY, 120 DOSES
     Route: 055
     Dates: start: 201903

REACTIONS (6)
  - Oxygen saturation decreased [Unknown]
  - Product dose omission [Unknown]
  - Intentional device misuse [Unknown]
  - Visual impairment [Unknown]
  - Malaise [Unknown]
  - Device failure [Unknown]

NARRATIVE: CASE EVENT DATE: 20190610
